FAERS Safety Report 16143577 (Version 2)
Quarter: 2019Q2

REPORT INFORMATION
  Report Type: Report from Study
  Country: MX (occurrence: MX)
  Receive Date: 20190401
  Receipt Date: 20190410
  Transmission Date: 20190711
  Serious: Yes (Other)
  Sender: FDA-Public Use
  Company Number: PHHY2019MX073418

PATIENT
  Age: 75 Year
  Sex: Female
  Weight: 58 kg

DRUGS (10)
  1. INSULINA [Concomitant]
     Active Substance: INSULIN NOS
     Indication: DIABETES MELLITUS
     Dosage: 1 DF, QD 40 UI(INT THE MORNING) SINCE FOUR YEARS
     Route: 059
  2. GALVUS MET [Suspect]
     Active Substance: METFORMIN HYDROCHLORIDE\VILDAGLIPTIN
     Indication: DIABETES MELLITUS
     Dosage: 1 DF, BID (METFORMIN 850 MG , VILDAGLIPTIN 50 MG )
     Route: 048
     Dates: start: 2016
  3. PARACETAMOL [Concomitant]
     Active Substance: ACETAMINOPHEN
     Indication: HEADACHE
     Dosage: 1 DF, QD (AT NIGHT) (SINCE SEVERAL YEARS)
     Route: 048
  4. VALMETROL 3 [Concomitant]
     Indication: OSTEOPOROSIS
     Dosage: 1 DF, QD (IN THE MORNING) (SINCE MORE THAN THREE YEARS)
     Route: 048
  5. SELOKEN ZOK [Concomitant]
     Indication: HYPERTENSION
     Dosage: 1 DF, QD (SINCE YEARS)
     Route: 048
  6. LOSARTAN. [Concomitant]
     Active Substance: LOSARTAN
     Indication: HYPERTENSION
     Dosage: 2 DF, QD (SINCE YEARS)
     Route: 048
  7. ASPIRIN PROTECT [Concomitant]
     Active Substance: ASPIRIN
     Indication: ANTICOAGULANT THERAPY
     Dosage: 1 DF, QD (AT NIGHT) (SINCE YEARS)
     Route: 065
  8. DUOTRAV (ALC) [Suspect]
     Active Substance: TIMOLOL MALEATE\TRAVOPROST
     Indication: INTRAOCULAR PRESSURE INCREASED
     Dosage: 1 DF, QD
     Route: 047
     Dates: start: 201711
  9. NOVOTIRAL [Concomitant]
     Active Substance: LEVOTHYROXINE
     Indication: HYPOTHYROIDISM
     Dosage: 0.25 DF, QD (IN THE MORNING)
     Route: 048
     Dates: start: 201710
  10. PREGABALINA [Concomitant]
     Active Substance: PREGABALIN
     Indication: MUSCLE SPASMS
     Dosage: 1 DF, QD (NIGHT )(SINCE MORE THAN THREE YEARS)
     Route: 048

REACTIONS (3)
  - Blindness unilateral [Not Recovered/Not Resolved]
  - Intraocular pressure increased [Not Recovered/Not Resolved]
  - Optic nerve disorder [Unknown]

NARRATIVE: CASE EVENT DATE: 201710
